FAERS Safety Report 10283468 (Version 1)
Quarter: 2014Q3

REPORT INFORMATION
  Report Type: Spontaneous
  Country: US (occurrence: None)
  Receive Date: 20140702
  Receipt Date: 20140702
  Transmission Date: 20150326
  Serious: Yes (Hospitalization)
  Sender: FDA-Public Use
  Company Number: 2013RT000009

PATIENT
  Age: 16 Year
  Sex: Male

DRUGS (1)
  1. PROCYSBI DELAYED-RELEASE [Suspect]
     Active Substance: CYSTEAMINE BITARTRATE
     Indication: CYSTINOSIS
     Route: 048

REACTIONS (4)
  - Nausea [None]
  - Inappropriate schedule of drug administration [None]
  - Vomiting [None]
  - Malaise [None]

NARRATIVE: CASE EVENT DATE: 20140621
